FAERS Safety Report 7635324-8 (Version None)
Quarter: 2011Q3

REPORT INFORMATION
  Report Type: 
  Country: None (occurrence: None)
  Receive Date: 20110718
  Receipt Date: 20110701
  Transmission Date: 20111222
  Serious: Yes (Death)
  Sender: FDA-Public Use
  Company Number: AMIT20110015

PATIENT
  Age: 71 Year
  Sex: Female

DRUGS (6)
  1. AMITRIPTYLINE HYDROCHLORIDE [Suspect]
     Indication: PRODUCT USED FOR UNKNOWN INDICATION
     Dosage: ORAL
     Route: 048
  2. NORTRIPTYLINE HCL [Suspect]
     Indication: PRODUCT USED FOR UNKNOWN INDICATION
  3. FLUOXETINE HYDROCHLORIDE [Suspect]
     Indication: PRODUCT USED FOR UNKNOWN INDICATION
  4. ACETAMINOPHEN [Suspect]
     Indication: PRODUCT USED FOR UNKNOWN INDICATION
  5. CARBON MONOXIDE (CARBON MONOXIDE) (INHALANT) [Suspect]
     Indication: ACCIDENTAL EXPOSURE
     Dosage: INHALATION
     Route: 055
  6. ALCOHOL (ETHANOL) (SOLUTION) [Suspect]
     Indication: PRODUCT USED FOR UNKNOWN INDICATION
     Dosage: ORAL
     Route: 048

REACTIONS (2)
  - RESPIRATORY FUME INHALATION DISORDER [None]
  - TOXICITY TO VARIOUS AGENTS [None]
